FAERS Safety Report 19112836 (Version 1)
Quarter: 2021Q2

REPORT INFORMATION
  Report Type: Spontaneous
  Country: CN (occurrence: CN)
  Receive Date: 20210408
  Receipt Date: 20210408
  Transmission Date: 20210717
  Serious: Yes (Death)
  Sender: FDA-Public Use
  Company Number: CN-PFIZER INC-2021338441

PATIENT
  Age: 86 Year
  Sex: Male

DRUGS (2)
  1. DESLORATADINE. [Concomitant]
     Active Substance: DESLORATADINE
     Indication: DERMATITIS EXFOLIATIVE GENERALISED
     Dosage: 5 MG, 1X/DAY
     Route: 048
  2. METHYLPREDNISOLONE. [Suspect]
     Active Substance: METHYLPREDNISOLONE
     Indication: DERMATITIS EXFOLIATIVE GENERALISED
     Dosage: 40 MG, 1X/DAY
     Route: 048

REACTIONS (1)
  - Pneumonia [Fatal]
